FAERS Safety Report 13806092 (Version 3)
Quarter: 2017Q3

REPORT INFORMATION
  Report Type: Report from Study
  Country: CA (occurrence: CA)
  Receive Date: 20170728
  Receipt Date: 20170814
  Transmission Date: 20171127
  Serious: Yes (Hospitalization, Other)
  Sender: FDA-Public Use
  Company Number: PHHY2016CA036453

PATIENT
  Age: 43 Year
  Sex: Male

DRUGS (2)
  1. TESTOSTERONE. [Concomitant]
     Active Substance: TESTOSTERONE
     Indication: PRODUCT USED FOR UNKNOWN INDICATION
     Route: 065
  2. SANDOSTATIN LAR DEPOT [Suspect]
     Active Substance: OCTREOTIDE ACETATE
     Indication: ACROMEGALY
     Dosage: 20 MG, EVERY 4 WEEKS (QMO)
     Route: 030
     Dates: start: 20160218

REACTIONS (8)
  - Cholelithiasis [Unknown]
  - Body temperature decreased [Unknown]
  - Incorrect dose administered [Unknown]
  - Abdominal pain [Unknown]
  - Diarrhoea [Unknown]
  - Bile duct stone [Unknown]
  - Needle issue [Unknown]
  - Pancreatitis acute [Unknown]

NARRATIVE: CASE EVENT DATE: 20160315
